FAERS Safety Report 5604026-1 (Version None)
Quarter: 2008Q1

REPORT INFORMATION
  Report Type: 
  Country: None (occurrence: None)
  Receive Date: 20080128
  Receipt Date: 20080116
  Transmission Date: 20080703
  Serious: Yes (Other)
  Sender: FDA-Public Use
  Company Number: PL-BRISTOL-MYERS SQUIBB COMPANY-14044895

PATIENT
  Age: 65 Year
  Sex: Male

DRUGS (4)
  1. ENTECAVIR [Suspect]
     Indication: HEPATITIS B
     Route: 048
     Dates: start: 20071009
  2. INSULIN [Concomitant]
     Dates: start: 19990101
  3. FUROSEMIDE [Concomitant]
     Dates: start: 20070101
  4. SPIRONOLACTONE [Concomitant]
     Dates: start: 20070101

REACTIONS (1)
  - BLOOD BICARBONATE DECREASED [None]
